FAERS Safety Report 19281371 (Version 2)
Quarter: 2021Q2

REPORT INFORMATION
  Report Type: Spontaneous
  Country: US (occurrence: US)
  Receive Date: 20210521
  Receipt Date: 20210524
  Transmission Date: 20210717
  Serious: Yes (Other)
  Sender: FDA-Public Use
  Company Number: US-BEH-2021131765

PATIENT
  Age: 21 Year
  Sex: Female

DRUGS (2)
  1. HUMAN IMMUNOGLOBULIN (INN) [Suspect]
     Active Substance: HUMAN IMMUNOGLOBULIN G
     Indication: NARCOLEPSY
     Dosage: 2 GRAM PER KILOGRAM, QD
     Route: 042
     Dates: start: 201801
  2. NATALIZUMAB [Concomitant]
     Active Substance: NATALIZUMAB
     Indication: NARCOLEPSY
     Dosage: 300 MILLIGRAM, MONTHLY
     Route: 042
     Dates: start: 20180321, end: 20190128

REACTIONS (6)
  - Drug ineffective for unapproved indication [Unknown]
  - No adverse event [Unknown]
  - Off label use [Unknown]
  - Headache [Unknown]
  - Musculoskeletal stiffness [Unknown]
  - Viral test positive [Unknown]
